FAERS Safety Report 5902805-4 (Version None)
Quarter: 2008Q3

REPORT INFORMATION
  Report Type: 
  Country: None (occurrence: None)
  Receive Date: 20080930
  Receipt Date: 20080918
  Transmission Date: 20090109
  Serious: Yes (Other)
  Sender: FDA-Public Use
  Company Number: US-JNJFOC-20080904488

PATIENT
  Sex: Male
  Weight: 58.97 kg

DRUGS (2)
  1. REMICADE [Suspect]
  2. REMICADE [Suspect]
     Indication: CROHN'S DISEASE

REACTIONS (7)
  - BLOOD PRESSURE INCREASED [None]
  - CROHN'S DISEASE [None]
  - DERMATITIS CONTACT [None]
  - DIZZINESS [None]
  - NECK PAIN [None]
  - POSTURAL ORTHOSTATIC TACHYCARDIA SYNDROME [None]
  - RASH [None]
